FAERS Safety Report 9681698 (Version 1)
Quarter: 2013Q4

REPORT INFORMATION
  Report Type: Spontaneous
  Country: GB (occurrence: GB)
  Receive Date: 20131111
  Receipt Date: 20131111
  Transmission Date: 20140711
  Serious: Yes (Other)
  Sender: FDA-Public Use
  Company Number: GB-US-EMD SERONO, INC.-7247047

PATIENT
  Age: 30 Year
  Sex: Female
  Weight: 86 kg

DRUGS (3)
  1. INTERFERON BETA [Suspect]
     Indication: MULTIPLE SCLEROSIS
     Route: 058
     Dates: start: 201111
  2. FOLIC ACID [Concomitant]
     Indication: PRODUCT USED FOR UNKNOWN INDICATION
     Route: 048
  3. VITAMIN B12                        /00056201/ [Concomitant]
     Indication: PRODUCT USED FOR UNKNOWN INDICATION

REACTIONS (2)
  - Stillbirth [Unknown]
  - Maternal exposure timing unspecified [Recovered/Resolved]
